FAERS Safety Report 5200068-9 (Version None)
Quarter: 2007Q1

REPORT INFORMATION
  Report Type: 
  Country: None (occurrence: None)
  Receive Date: 20070105
  Receipt Date: 20061228
  Transmission Date: 20070707
  Serious: Yes (Hospitalization)
  Sender: FDA-Public Use
  Company Number: US-JNJFOC-20070100029

PATIENT
  Sex: Female
  Weight: 46.72 kg

DRUGS (7)
  1. TOPAMAX [Suspect]
     Indication: BIPOLAR DISORDER
     Route: 048
  2. PRAVACHOL [Concomitant]
  3. TRAZODONE HCL [Concomitant]
     Indication: SLEEP DISORDER THERAPY
     Route: 048
  4. EFFEXOR XR [Concomitant]
     Indication: DEPRESSION
     Route: 048
  5. THEO-DUR [Concomitant]
     Indication: EMPHYSEMA
     Route: 048
  6. ALBUTEROL [Concomitant]
     Indication: EMPHYSEMA
     Route: 055
  7. PROVIGIL [Concomitant]
     Indication: BIPOLAR DISORDER
     Route: 048

REACTIONS (11)
  - DEPRESSED MOOD [None]
  - INFLUENZA [None]
  - INSOMNIA [None]
  - LOSS OF CONSCIOUSNESS [None]
  - MENTAL IMPAIRMENT [None]
  - MYOCARDIAL INFARCTION [None]
  - NERVOUSNESS [None]
  - PARANOIA [None]
  - PNEUMONIA [None]
  - TREMOR [None]
  - VISION BLURRED [None]
